FAERS Safety Report 9292251 (Version 1)
Quarter: 2013Q2

REPORT INFORMATION
  Report Type: Spontaneous
  Country: BR (occurrence: BR)
  Receive Date: 20130516
  Receipt Date: 20130516
  Transmission Date: 20140414
  Serious: Yes (Hospitalization)
  Sender: FDA-Public Use
  Company Number: BR-ROCHE-1147848

PATIENT
  Age: 54 Year
  Sex: Female
  Weight: 80 kg

DRUGS (8)
  1. RIVOTRIL [Suspect]
     Indication: DEPRESSION
     Route: 048
     Dates: end: 20121019
  2. LEXOTAN [Suspect]
     Indication: DEPRESSION
     Route: 065
     Dates: start: 20121020
  3. ESCITALOPRAM OXALATE [Concomitant]
     Indication: ANXIETY
     Route: 065
     Dates: start: 20120927
  4. EXODUS [Concomitant]
     Route: 065
     Dates: start: 20120927
  5. SIMVASTATIN [Concomitant]
  6. CLOPIDOGREL [Concomitant]
  7. LOSARTAN [Concomitant]
  8. CARVEDILOL [Concomitant]

REACTIONS (10)
  - Emotional disorder [Not Recovered/Not Resolved]
  - Fear [Not Recovered/Not Resolved]
  - Depressed mood [Not Recovered/Not Resolved]
  - Alopecia [Not Recovered/Not Resolved]
  - Decreased appetite [Not Recovered/Not Resolved]
  - Weight decreased [Not Recovered/Not Resolved]
  - Nervousness [Not Recovered/Not Resolved]
  - Tachycardia [Recovered/Resolved]
  - Malaise [Not Recovered/Not Resolved]
  - Myocardial infarction [Recovered/Resolved]
